FAERS Safety Report 23318312 (Version 3)
Quarter: 2023Q4

REPORT INFORMATION
  Report Type: Report from Study
  Country: GR (occurrence: GR)
  Receive Date: 20231220
  Receipt Date: 20231222
  Transmission Date: 20240110
  Serious: Yes (Hospitalization)
  Sender: FDA-Public Use
  Company Number: GR-ABBVIE-5543490

PATIENT
  Age: 72 Year
  Sex: Female
  Weight: 50 kg

DRUGS (6)
  1. CARBIDOPA\LEVODOPA [Suspect]
     Active Substance: CARBIDOPA\LEVODOPA
     Indication: Parkinson^s disease
     Dosage: MORNING DOSE: 2.0ML; CONTINUOUS RATE: 2.8ML/H; EXTRA DOSE: 1.0ML
     Route: 050
     Dates: start: 20231208
  2. CARBIDOPA\LEVODOPA [Suspect]
     Active Substance: CARBIDOPA\LEVODOPA
     Dosage: MORNING DOSE: 5.0ML; CONTINUOUS RATE: 2.8ML/H; EXTRA DOSE: 1.0ML
     Route: 050
  3. CARBIDOPA\LEVODOPA [Suspect]
     Active Substance: CARBIDOPA\LEVODOPA
     Dosage: MORNING DOSE: 5.0ML; CONTINUOUS RATE: 2.8ML/H; EXTRA DOSE: 1.0ML
     Route: 050
  4. CARBIDOPA\LEVODOPA [Suspect]
     Active Substance: CARBIDOPA\LEVODOPA
     Dosage: MORNING DOSE: 5.0ML; CONTINUOUS RATE: 2.8ML/H; EXTRA DOSE: 1.0ML
     Route: 050
  5. NEUPRO [Concomitant]
     Active Substance: ROTIGOTINE
     Indication: Parkinson^s disease
     Dosage: FORM STRENGTH: 8 MILLIGRAM? ONGOING
  6. ZYPREXA [Concomitant]
     Active Substance: OLANZAPINE
     Indication: Hallucination
     Dosage: UNIT DOSE: 0.625MG, FORM STRENGTH: 2.5MG

REACTIONS (7)
  - Device leakage [Not Recovered/Not Resolved]
  - Product dose omission issue [Recovered/Resolved]
  - Wrong technique in device usage process [Unknown]
  - Diarrhoea [Recovered/Resolved]
  - Stoma site pain [Recovering/Resolving]
  - White blood cell count increased [Unknown]
  - Adverse food reaction [Recovered/Resolved]

NARRATIVE: CASE EVENT DATE: 20231211
